FAERS Safety Report 8495726-7 (Version None)
Quarter: 2012Q3

REPORT INFORMATION
  Report Type: 
  Country: None (occurrence: None)
  Receive Date: 20120709
  Receipt Date: 20120703
  Transmission Date: 20120928
  Serious: Yes (Other)
  Sender: FDA-Public Use
  Company Number: BR-ROCHE-1084205

PATIENT
  Sex: Female
  Weight: 85 kg

DRUGS (6)
  1. MABTHERA [Suspect]
     Indication: PRODUCT USED FOR UNKNOWN INDICATION
     Route: 042
     Dates: start: 20090901, end: 20111116
  2. ACETAMINOPHEN [Concomitant]
     Indication: PREMEDICATION
     Dosage: 3 TABLETS
  3. DICLOFENAC SODIUM [Concomitant]
  4. METHOTREXATE [Concomitant]
     Indication: PREMEDICATION
  5. LANSOPRAZOLE [Concomitant]
  6. CALCORT [Concomitant]

REACTIONS (1)
  - JOINT INJURY [None]
